FAERS Safety Report 9831641 (Version 1)
Quarter: 2014Q1

REPORT INFORMATION
  Report Type: Spontaneous
  Country: US (occurrence: US)
  Receive Date: 20140121
  Receipt Date: 20140121
  Transmission Date: 20141002
  Serious: No
  Sender: FDA-Public Use
  Company Number: US-PFIZER INC-2014016711

PATIENT
  Age: 73 Year
  Sex: Male
  Weight: 95.24 kg

DRUGS (4)
  1. LIPITOR [Suspect]
     Indication: CARDIAC DISORDER
     Dosage: UNK
  2. ATENOLOL [Concomitant]
     Dosage: UNK
  3. LISINOPRIL [Concomitant]
     Dosage: UNK
  4. HYDROCHLOROTHIAZIDE [Concomitant]
     Dosage: UNK

REACTIONS (1)
  - Muscle spasms [Unknown]
